FAERS Safety Report 14988176 (Version 2)
Quarter: 2018Q2

REPORT INFORMATION
  Report Type: Spontaneous
  Country: US (occurrence: US)
  Receive Date: 20180608
  Receipt Date: 20180620
  Transmission Date: 20180711
  Serious: No
  Sender: FDA-Public Use
  Company Number: US-PFIZER INC-2018234135

PATIENT
  Age: 56 Year
  Sex: Female

DRUGS (1)
  1. METHOTREXATE SODIUM. [Suspect]
     Active Substance: METHOTREXATE SODIUM
     Indication: RHEUMATOID ARTHRITIS
     Dosage: UNK (GREATER THAN OR EQUAL TO 20 MG PER WEEK)

REACTIONS (8)
  - Drug intolerance [Unknown]
  - Dizziness [Unknown]
  - Vomiting [Unknown]
  - Gastrointestinal disorder [Unknown]
  - Alopecia [Unknown]
  - Treatment failure [Unknown]
  - Drug effect incomplete [Unknown]
  - Drug hypersensitivity [Unknown]
